FAERS Safety Report 19007612 (Version 1)
Quarter: 2021Q1

REPORT INFORMATION
  Report Type: Spontaneous
  Country: US (occurrence: US)
  Receive Date: 20210315
  Receipt Date: 20210315
  Transmission Date: 20210420
  Serious: Yes (Hospitalization)
  Sender: FDA-Public Use
  Company Number: US-TEVA-2021-US-1887771

PATIENT
  Age: 14 Year
  Sex: Female

DRUGS (5)
  1. GUANFACINE. [Suspect]
     Active Substance: GUANFACINE
     Indication: ATTENTION DEFICIT HYPERACTIVITY DISORDER
     Dosage: 3 MILLIGRAM DAILY; FORMULATION: ER
     Route: 048
  2. ISOTRETINOIN. [Suspect]
     Active Substance: ISOTRETINOIN
     Indication: ACNE
     Dosage: 30 MILLIGRAM DAILY; DISCONTINUED USE 2 DAYS PRIOR TO PRESENTATION
     Route: 048
  3. METHYLPHENIDATE. [Concomitant]
     Active Substance: METHYLPHENIDATE
     Indication: ATTENTION DEFICIT HYPERACTIVITY DISORDER
     Dosage: 45 MILLIGRAM DAILY;
     Route: 048
  4. GLYCOPYRRONIUM TOSYLATE [Suspect]
     Active Substance: GLYCOPYRRONIUM TOSYLATE
     Indication: HYPERHIDROSIS
     Dosage: WIPES, USING FOR PAST 2 WEEKS
     Route: 061
  5. NORGESTIMATE?ETHINYL ESTRADIOL [Concomitant]
     Active Substance: ETHINYL ESTRADIOL\NORGESTIMATE
     Indication: CONTRACEPTION
     Route: 065

REACTIONS (11)
  - Tachycardia [Recovered/Resolved]
  - Mood swings [Unknown]
  - Dry throat [Recovered/Resolved]
  - Symptom masked [Unknown]
  - Mydriasis [Recovered/Resolved]
  - Intentional product misuse [Unknown]
  - Depression [Unknown]
  - Dysphonia [Recovered/Resolved]
  - Urinary hesitation [Recovered/Resolved]
  - Electrocardiogram QT prolonged [Recovered/Resolved]
  - Toxicity to various agents [Recovered/Resolved]
